FAERS Safety Report 10041388 (Version 1)
Quarter: 2014Q1

REPORT INFORMATION
  Report Type: Spontaneous
  Country: IN (occurrence: IN)
  Receive Date: 20140327
  Receipt Date: 20140327
  Transmission Date: 20141002
  Serious: Yes (Death)
  Sender: FDA-Public Use
  Company Number: PHHY2014IN036623

PATIENT
  Age: 66 Year
  Sex: Male

DRUGS (1)
  1. ASUNRA [Suspect]
     Indication: THALASSAEMIA
     Dosage: 400 MG, QD (PER DAY)
     Route: 048
     Dates: start: 20130725

REACTIONS (1)
  - Death [Fatal]
